FAERS Safety Report 6615834-2 (Version None)
Quarter: 2010Q1

REPORT INFORMATION
  Report Type: 
  Country: None (occurrence: None)
  Receive Date: 20100305
  Receipt Date: 20100222
  Transmission Date: 20100710
  Serious: Yes (Hospitalization, Other)
  Sender: FDA-Public Use
  Company Number: US-PFIZER INC-2009232263

PATIENT
  Sex: Male
  Weight: 113.39 kg

DRUGS (7)
  1. CHANTIX [Suspect]
     Indication: SMOKING CESSATION THERAPY
     Dosage: 1 MG, 2X/DAY
     Route: 048
     Dates: start: 20080201, end: 20080901
  2. NITROGLYCERIN [Suspect]
  3. PENICILLIN [Suspect]
  4. ACETYLSALICYLIC ACID [Suspect]
  5. ROCEPHIN [Suspect]
  6. CONTRAST MEDIA [Suspect]
  7. ALL OTHER THERAPEUTIC PRODUCTS [Suspect]

REACTIONS (8)
  - ACUTE RESPIRATORY DISTRESS SYNDROME [None]
  - CEREBROVASCULAR ACCIDENT [None]
  - CONFUSIONAL STATE [None]
  - DEATH [None]
  - GASTROINTESTINAL GANGRENE [None]
  - HYPERSENSITIVITY [None]
  - NECROTISING FASCIITIS [None]
  - URTICARIA [None]
